FAERS Safety Report 7108061-6 (Version None)
Quarter: 2010Q4

REPORT INFORMATION
  Report Type: 
  Country: None (occurrence: None)
  Receive Date: 20101115
  Receipt Date: 20101115
  Transmission Date: 20110411
  Serious: No
  Sender: FDA-Public Use
  Company Number: None

PATIENT
  Age: 56 Year
  Sex: Female
  Weight: 61.2356 kg

DRUGS (1)
  1. LIVALO [Suspect]
     Dosage: 4MG QD ORAL
     Route: 048
     Dates: start: 20100916

REACTIONS (1)
  - HEADACHE [None]
